FAERS Safety Report 8056830-0 (Version None)
Quarter: 2012Q1

REPORT INFORMATION
  Report Type: 
  Country: None (occurrence: None)
  Receive Date: 20120119
  Receipt Date: 20110607
  Transmission Date: 20120608
  Serious: No
  Sender: FDA-Public Use
  Company Number: US-SANOFI-AVENTIS-2011SA039604

PATIENT
  Sex: Female
  Weight: 90.7 kg

DRUGS (7)
  1. ASPIRIN [Concomitant]
     Indication: THROMBOSIS PROPHYLAXIS
     Route: 048
  2. LISINOPRIL [Concomitant]
     Indication: BLOOD PRESSURE ABNORMAL
     Route: 048
  3. XALATAN [Suspect]
     Dosage: 1 DROP IN THE RIGHT EYE AT BEDTIME DAILY, OPTHALMIC
     Route: 047
     Dates: start: 20110101
  4. METOPROLOL TARTRATE [Concomitant]
     Route: 048
  5. LASIX [Suspect]
     Route: 048
  6. ASPIRIN [Concomitant]
     Route: 048
  7. PLAVIX [Concomitant]
     Route: 048

REACTIONS (2)
  - BLOOD POTASSIUM DECREASED [None]
  - VISION BLURRED [None]
